FAERS Safety Report 16024724 (Version 2)
Quarter: 2019Q2

REPORT INFORMATION
  Report Type: Spontaneous
  Country: FR (occurrence: FR)
  Receive Date: 20190301
  Receipt Date: 20190523
  Transmission Date: 20190711
  Serious: Yes (Hospitalization)
  Sender: FDA-Public Use
  Company Number: FR-GRUNENTHAL-2019-11824

PATIENT
  Age: 36 Year
  Sex: Female

DRUGS (1)
  1. QUTENZA [Suspect]
     Active Substance: CAPSAICIN
     Indication: NEURALGIA
     Dosage: 1 DF, UNK
     Route: 003
     Dates: start: 20180706

REACTIONS (1)
  - Application site burn [Recovered/Resolved]

NARRATIVE: CASE EVENT DATE: 20180706
